FAERS Safety Report 9674510 (Version 2)
Quarter: 2013Q4

REPORT INFORMATION
  Report Type: Spontaneous
  Country: IL (occurrence: IL)
  Receive Date: 20131107
  Receipt Date: 20131124
  Transmission Date: 20140711
  Serious: Yes (Disabling)
  Sender: FDA-Public Use
  Company Number: IL-BRISTOL-MYERS SQUIBB COMPANY-19761584

PATIENT
  Age: 57 Year
  Sex: Female

DRUGS (2)
  1. ERBITUX SOLN FOR INF 5MG/ML [Suspect]
     Indication: BREAST CANCER METASTATIC
     Route: 042
     Dates: start: 20130707, end: 20130917
  2. CISPLATIN [Suspect]
     Indication: BREAST CANCER METASTATIC
     Dates: start: 20130707

REACTIONS (4)
  - Nervous system disorder [Unknown]
  - Cognitive disorder [Unknown]
  - Weight increased [Unknown]
  - Off label use [Unknown]
